FAERS Safety Report 16232496 (Version 2)
Quarter: 2019Q2

REPORT INFORMATION
  Report Type: Spontaneous
  Country: US (occurrence: US)
  Receive Date: 20190424
  Receipt Date: 20190516
  Transmission Date: 20190711
  Serious: Yes (Other)
  Sender: FDA-Public Use
  Company Number: US-KYOWAKIRIN-2019BKK006346

PATIENT

DRUGS (1)
  1. POTELIGEO [Suspect]
     Active Substance: MOGAMULIZUMAB-KPKC
     Indication: CUTANEOUS T-CELL LYMPHOMA STAGE IV
     Dosage: 2 CYCLES
     Route: 065
     Dates: start: 20181121

REACTIONS (1)
  - Disease progression [Unknown]
